FAERS Safety Report 9511756 (Version 1)
Quarter: 2013Q3

REPORT INFORMATION
  Report Type: Spontaneous
  Country: DK (occurrence: DE)
  Receive Date: 20130910
  Receipt Date: 20130910
  Transmission Date: 20140515
  Serious: Yes (Hospitalization)
  Sender: FDA-Public Use
  Company Number: DE-FRI-1000048494

PATIENT
  Age: 31 Year
  Sex: Female
  Weight: 60 kg

DRUGS (3)
  1. ESCITALOPRAM [Suspect]
     Indication: DEPRESSION
     Dosage: 20 MG
     Route: 048
     Dates: start: 2010, end: 20130713
  2. ESCITALOPRAM ORAL SOLUTION [Suspect]
     Indication: DEPRESSION
     Dosage: 1 MG
     Route: 048
     Dates: start: 20130714, end: 20130806
  3. CITADURA [Concomitant]
     Indication: DEPRESSION
     Dosage: 30 MG
     Route: 048
     Dates: start: 2003, end: 2010

REACTIONS (3)
  - Obstructed labour [Recovered/Resolved]
  - Caesarean section [Recovered/Resolved]
  - Pregnancy [Recovered/Resolved]
